FAERS Safety Report 7123201 (Version 4)
Quarter: 2014Q4

REPORT INFORMATION
  Report Type: Report from Study
  Country: US (occurrence: US)
  Receive Date: 20090921
  Receipt Date: 20141211
  Transmission Date: 20150529
  Serious: Yes (Other)
  Sender: FDA-Public Use
  Company Number: US-BIOGENIDEC-2009BI028922

PATIENT
  Age: 70 Year
  Sex: Female

DRUGS (1)
  1. AVONEX [Suspect]
     Active Substance: INTERFERON BETA-1A
     Indication: MULTIPLE SCLEROSIS
     Route: 030
     Dates: start: 19991001

REACTIONS (7)
  - Weight decreased [Unknown]
  - Dysgeusia [Recovered/Resolved]
  - Muscular weakness [Not Recovered/Not Resolved]
  - Hepatic neoplasm [Unknown]
  - Restless legs syndrome [Unknown]
  - Lower limb fracture [Recovered/Resolved with Sequelae]
  - Retinal detachment [Recovered/Resolved]

NARRATIVE: CASE EVENT DATE: 2009
